FAERS Safety Report 6228137-5 (Version None)
Quarter: 2009Q2

REPORT INFORMATION
  Report Type: 
  Country: None (occurrence: None)
  Receive Date: 20090612
  Receipt Date: 20090603
  Transmission Date: 20091009
  Serious: Yes (Hospitalization)
  Sender: FDA-Public Use
  Company Number: AT-GENENTECH-284369

PATIENT
  Sex: Female

DRUGS (2)
  1. BEVACIZUMAB [Suspect]
     Indication: COLON CANCER
     Dosage: 375 MG, Q3W
     Route: 042
     Dates: start: 20090127
  2. CAPECITABINE [Suspect]
     Indication: COLON CANCER
     Dosage: 1500 MG, BID
     Route: 048
     Dates: start: 20090127

REACTIONS (1)
  - MYOCARDIAL ISCHAEMIA [None]
